FAERS Safety Report 14900028 (Version 1)
Quarter: 2018Q2

REPORT INFORMATION
  Report Type: Spontaneous
  Country: FR (occurrence: FR)
  Receive Date: 20180516
  Receipt Date: 20180516
  Transmission Date: 20180711
  Serious: Yes (Other)
  Sender: FDA-Public Use
  Company Number: FR-MERCK KGAA-2047868

PATIENT
  Age: 53 Year
  Sex: Female

DRUGS (1)
  1. NOVOTHYROX [Suspect]
     Active Substance: LEVOTHYROXINE SODIUM
     Indication: PRODUCT USED FOR UNKNOWN INDICATION
     Dates: start: 201704

REACTIONS (23)
  - Dysphagia [None]
  - Impaired work ability [None]
  - Mental impairment [None]
  - Pain in extremity [None]
  - Asthenia [None]
  - Personal relationship issue [None]
  - Mental disorder [None]
  - Sleep disorder [None]
  - Mood altered [None]
  - Fatigue [None]
  - Weight decreased [None]
  - Vertigo [None]
  - Abdominal discomfort [None]
  - Pruritus [None]
  - Abdominal pain upper [None]
  - Psychiatric symptom [None]
  - Irritability [None]
  - Thyroxine free increased [None]
  - Decreased appetite [None]
  - Fear of falling [None]
  - Myalgia [None]
  - Nervous system disorder [None]
  - Nausea [None]

NARRATIVE: CASE EVENT DATE: 201704
